FAERS Safety Report 15562126 (Version 1)
Quarter: 2018Q4

REPORT INFORMATION
  Report Type: Report from Study
  Country: None (occurrence: US)
  Receive Date: 20181029
  Receipt Date: 20181029
  Transmission Date: 20190205
  Serious: Yes (Other)
  Sender: FDA-Public Use
  Company Number: US-ABBVIE-18K-163-2527639-00

PATIENT
  Age: 20 Year
  Sex: Male
  Weight: 80.36 kg

DRUGS (1)
  1. HUMIRA [Suspect]
     Active Substance: ADALIMUMAB
     Indication: COLITIS ULCERATIVE
     Route: 058
     Dates: start: 2015

REACTIONS (6)
  - Fibula fracture [Recovering/Resolving]
  - Fall [Recovered/Resolved]
  - Headache [Recovered/Resolved]
  - Tibia fracture [Recovering/Resolving]
  - Nasal septum deviation [Recovered/Resolved]
  - Sinusitis [Recovered/Resolved]

NARRATIVE: CASE EVENT DATE: 2017
